FAERS Safety Report 4553813-X (Version None)
Quarter: 2005Q1

REPORT INFORMATION
  Report Type: 
  Country: None (occurrence: None)
  Receive Date: 20050114
  Receipt Date: 20050114
  Transmission Date: 20050727
  Serious: Yes (Disabling)
  Sender: FDA-Public Use
  Company Number: None

PATIENT
  Age: 52 Year
  Sex: Female

DRUGS (1)
  1. LIPITOR [Suspect]
     Indication: BLOOD CHOLESTEROL INCREASED
     Dosage: 80MG   1 X DAY   ORAL
     Route: 048
     Dates: start: 20020301, end: 20030401

REACTIONS (2)
  - MUSCLE ATROPHY [None]
  - POLYMYOSITIS [None]
